FAERS Safety Report 25162682 (Version 1)
Quarter: 2025Q2

REPORT INFORMATION
  Report Type: Spontaneous
  Country: MY (occurrence: MY)
  Receive Date: 20250404
  Receipt Date: 20250404
  Transmission Date: 20250717
  Serious: Yes (Other)
  Sender: NOVARTIS
  Company Number: MY-002147023-NVSC2025MY055624

PATIENT

DRUGS (1)
  1. ASCIMINIB [Suspect]
     Active Substance: ASCIMINIB
     Indication: Philadelphia positive chronic myeloid leukaemia
     Dosage: 40 MG, BID
     Route: 065

REACTIONS (1)
  - Myocardial infarction [Unknown]
